FAERS Safety Report 9648790 (Version 1)
Quarter: 2013Q4

REPORT INFORMATION
  Report Type: Spontaneous
  Country: KR (occurrence: KR)
  Receive Date: 20131028
  Receipt Date: 20131028
  Transmission Date: 20140711
  Serious: Yes (Other)
  Sender: FDA-Public Use
  Company Number: KR-PFIZER INC-2013306117

PATIENT
  Age: 75 Year
  Sex: Female

DRUGS (7)
  1. PREGABALIN [Suspect]
     Indication: PROCEDURAL PAIN
     Dosage: 150 MG, DAILY
     Route: 048
  2. OXYCODONE [Interacting]
     Indication: PROCEDURAL PAIN
     Dosage: 10 MG
  3. FENTANYL [Concomitant]
     Indication: PROCEDURAL PAIN
     Dosage: UNK
     Route: 042
  4. KETOROLAC [Concomitant]
     Indication: PROCEDURAL PAIN
     Dosage: UNK
     Route: 042
  5. RAMOSETRON [Concomitant]
     Indication: PROPHYLAXIS OF NAUSEA AND VOMITING
     Dosage: UNK
  6. RAMOSETRON [Concomitant]
     Indication: PROPHYLAXIS OF NAUSEA AND VOMITING
  7. CELECOXIB [Concomitant]
     Indication: PROCEDURAL PAIN
     Dosage: 400 MG WITH A DIVIDED DOSE

REACTIONS (2)
  - Drug interaction [Recovered/Resolved]
  - Serotonin syndrome [Recovered/Resolved]
